FAERS Safety Report 24366758 (Version 1)
Quarter: 2024Q3

REPORT INFORMATION
  Report Type: Spontaneous
  Country: FR (occurrence: FR)
  Receive Date: 20240926
  Receipt Date: 20240926
  Transmission Date: 20241017
  Serious: Yes (Hospitalization)
  Sender: CHEPLAPHARM
  Company Number: None

PATIENT
  Age: 59 Year
  Sex: Male

DRUGS (13)
  1. CLONAZEPAM [Suspect]
     Active Substance: CLONAZEPAM
     Indication: Product used for unknown indication
     Route: 048
     Dates: start: 2022
  2. OXYCODONE [Suspect]
     Active Substance: OXYCODONE
     Indication: Pain
     Dosage: GRADUAL REDUCTION ?DAILY DOSE: 30 MILLIGRAM
     Route: 048
     Dates: start: 202206, end: 20240305
  3. OXYCODONE [Suspect]
     Active Substance: OXYCODONE
     Indication: Drug withdrawal syndrome
     Dosage: GRADUAL REDUCTION ?DAILY DOSE: 30 MILLIGRAM
     Route: 048
     Dates: start: 202206, end: 20240305
  4. OXYCODONE [Suspect]
     Active Substance: OXYCODONE
     Indication: Pain
     Dosage: 20 MG IN THE MORNING AND 10 MG IN THE EVENING, MONITORING OF INTAKE BY SON
     Route: 048
     Dates: start: 202206
  5. OXYCODONE [Suspect]
     Active Substance: OXYCODONE
     Indication: Drug withdrawal syndrome
     Dosage: 20 MG IN THE MORNING AND 10 MG IN THE EVENING, MONITORING OF INTAKE BY SON
     Route: 048
     Dates: start: 202206
  6. ZOPICLONE [Suspect]
     Active Substance: ZOPICLONE
     Indication: Insomnia
     Dosage: DAILY DOSE: 11.25 MILLIGRAM
     Route: 048
     Dates: start: 2022
  7. OXAZEPAM [Suspect]
     Active Substance: OXAZEPAM
     Indication: Product used for unknown indication
     Dosage: DAILY DOSE: 70 MILLIGRAM
     Route: 048
     Dates: start: 2022
  8. BACLOFEN [Suspect]
     Active Substance: BACLOFEN
  9. PANTOPRAZOLE [Suspect]
     Active Substance: PANTOPRAZOLE
  10. PREGABALIN [Suspect]
     Active Substance: PREGABALIN
  11. AMITRIPTYLINE [Suspect]
     Active Substance: AMITRIPTYLINE
  12. BISOPROLOL [Suspect]
     Active Substance: BISOPROLOL\BISOPROLOL FUMARATE
  13. VALSARTAN [Suspect]
     Active Substance: VALSARTAN

REACTIONS (6)
  - Drug use disorder [Not Recovered/Not Resolved]
  - Mydriasis [Unknown]
  - Dry mouth [Unknown]
  - Sedation [Unknown]
  - Bradykinesia [Unknown]
  - Pain [Unknown]

NARRATIVE: CASE EVENT DATE: 20240306
